FAERS Safety Report 5652688-5 (Version None)
Quarter: 2008Q1

REPORT INFORMATION
  Report Type: 
  Country: None (occurrence: None)
  Receive Date: 20080305
  Receipt Date: 20080305
  Transmission Date: 20080703
  Serious: Yes (Hospitalization)
  Sender: FDA-Public Use
  Company Number: None

PATIENT
  Age: 59 Year
  Sex: Male
  Weight: 71 kg

DRUGS (2)
  1. GENTAMICIN [Suspect]
     Dosage: 400MG EVERY DAY IV
     Route: 042
     Dates: start: 20071208, end: 20071226
  2. VANCOMYCIN [Suspect]
     Dosage: 1000MG BID IV
     Route: 042
     Dates: start: 20071208, end: 20071226

REACTIONS (1)
  - RENAL FAILURE ACUTE [None]
